FAERS Safety Report 15820849 (Version 3)
Quarter: 2019Q1

REPORT INFORMATION
  Report Type: Report from Study
  Country: CA (occurrence: CA)
  Receive Date: 20190114
  Receipt Date: 20190128
  Transmission Date: 20190417
  Serious: No
  Sender: FDA-Public Use
  Company Number: CA-SA-2018SA075439

PATIENT
  Age: 50 Year
  Sex: Female

DRUGS (7)
  1. GRAVOL [Concomitant]
     Active Substance: DIMENHYDRINATE
     Indication: PREMEDICATION
     Dosage: UNK, UNK
     Route: 065
     Dates: start: 20180307, end: 20180309
  2. METHYLPREDNISOLONE. [Concomitant]
     Active Substance: METHYLPREDNISOLONE
     Indication: PREMEDICATION
     Dosage: 1 G,UNK
     Route: 065
     Dates: start: 20180307, end: 20180309
  3. ACETAMINOPHEN. [Concomitant]
     Active Substance: ACETAMINOPHEN
     Indication: PREMEDICATION
     Dosage: 1 G,PRN
     Route: 048
     Dates: start: 20180307
  4. RANITIDINE. [Concomitant]
     Active Substance: RANITIDINE
     Indication: PREMEDICATION
     Dosage: 150 MG,UNK
     Route: 048
     Dates: start: 20180307, end: 20180309
  5. ACICLOVIR [Concomitant]
     Active Substance: ACYCLOVIR
     Indication: PREMEDICATION
     Dosage: 200 MG,UNK
     Route: 048
     Dates: start: 20180307
  6. BENADRYL [Concomitant]
     Active Substance: DIPHENHYDRAMINE HYDROCHLORIDE
     Indication: PREMEDICATION
     Dosage: 50 MG,UNK
     Route: 048
     Dates: start: 20180307, end: 20180309
  7. ALEMTUZUMAB [Suspect]
     Active Substance: ALEMTUZUMAB
     Indication: RELAPSING-REMITTING MULTIPLE SCLEROSIS
     Dosage: 12 MG,QD
     Route: 041
     Dates: start: 20180307, end: 20180309

REACTIONS (25)
  - Lymphocyte percentage decreased [Not Recovered/Not Resolved]
  - Insomnia [Recovered/Resolved]
  - Ill-defined disorder [Recovered/Resolved]
  - Mean cell haemoglobin concentration decreased [Recovered/Resolved]
  - Granulocyte count increased [Not Recovered/Not Resolved]
  - Urine abnormality [Not Recovered/Not Resolved]
  - Urine analysis abnormal [Not Recovered/Not Resolved]
  - Lymphocyte count decreased [Not Recovered/Not Resolved]
  - Lipaemic index score [Recovered/Resolved]
  - Paraesthesia [Recovered/Resolved]
  - Urine analysis abnormal [Not Recovered/Not Resolved]
  - Headache [Recovered/Resolved]
  - Neutrophil percentage increased [Not Recovered/Not Resolved]
  - Laboratory test abnormal [Not Recovered/Not Resolved]
  - Mean platelet volume increased [Recovered/Resolved]
  - Bacterial test positive [Not Recovered/Not Resolved]
  - Nitrite urine present [Recovered/Resolved]
  - Erythema [Recovered/Resolved]
  - Haematocrit increased [Recovered/Resolved]
  - Red cell distribution width increased [Recovered/Resolved]
  - Pruritus [Recovered/Resolved]
  - Neutrophil count increased [Not Recovered/Not Resolved]
  - Red blood cell count increased [Recovered/Resolved]
  - Crystal urine present [Unknown]
  - Pyrexia [Recovered/Resolved]

NARRATIVE: CASE EVENT DATE: 20180307
